FAERS Safety Report 13425460 (Version 3)
Quarter: 2018Q2

REPORT INFORMATION
  Report Type: Report from Study
  Country: JP (occurrence: JP)
  Receive Date: 20170411
  Receipt Date: 20180410
  Transmission Date: 20180711
  Serious: Yes (Other)
  Sender: FDA-Public Use
  Company Number: JP-SHIRE-JP201402691

PATIENT

DRUGS (55)
  1. REGPARA [Concomitant]
     Active Substance: CINACALCET HYDROCHLORIDE
     Indication: HYPERPARATHYROIDISM SECONDARY
     Dosage: 50 MG, UNKNOWN
     Route: 048
     Dates: end: 20130801
  2. PURSENNID                          /00142207/ [Concomitant]
     Active Substance: SENNA LEAF
     Indication: PRODUCT USED FOR UNKNOWN INDICATION
     Dosage: 48 MG, UNKNOWN
     Route: 048
  3. ONON [Concomitant]
     Active Substance: PRANLUKAST
     Indication: PRODUCT USED FOR UNKNOWN INDICATION
     Dosage: 225 MG, UNKNOWN
     Route: 048
  4. MAXACALCITOL [Concomitant]
     Active Substance: MAXACALCITOL
     Dosage: 5 ?G, UNKNOWN
     Route: 042
     Dates: start: 20170222
  5. 405 (LANTHANUM CARBONATE) [Suspect]
     Active Substance: LANTHANUM CARBONATE
     Indication: HYPERPHOSPHATAEMIA
     Dosage: 750 MG, UNKNOWN (PER DAY)
     Route: 048
     Dates: start: 20100209, end: 20130120
  6. 405 (LANTHANUM CARBONATE) [Suspect]
     Active Substance: LANTHANUM CARBONATE
     Dosage: 250 MG, UNKNOWN
     Route: 048
     Dates: start: 20160727, end: 20160805
  7. ROCALTROL [Concomitant]
     Active Substance: CALCITRIOL
     Indication: PRODUCT USED FOR UNKNOWN INDICATION
     Dosage: 1 ?G, UNKNOWN
     Route: 042
     Dates: start: 20120305, end: 20120808
  8. REGPARA [Concomitant]
     Active Substance: CINACALCET HYDROCHLORIDE
     Dosage: 50 MG, UNKNOWN
     Route: 048
     Dates: start: 20131206
  9. MYSLEE [Concomitant]
     Active Substance: ZOLPIDEM TARTRATE
     Indication: PRODUCT USED FOR UNKNOWN INDICATION
     Dosage: 10 MG, UNKNOWN
     Route: 048
  10. ROCALTROL [Concomitant]
     Active Substance: CALCITRIOL
     Dosage: 2 ?G, UNKNOWN
     Route: 042
     Dates: start: 20130807, end: 20130908
  11. 405 (LANTHANUM CARBONATE) [Suspect]
     Active Substance: LANTHANUM CARBONATE
     Indication: HYPERPHOSPHATAEMIA
     Dosage: 1000 MG, UNKNOWN (/ DAY)
     Route: 048
     Dates: start: 20130121
  12. REGPARA [Concomitant]
     Active Substance: CINACALCET HYDROCHLORIDE
     Dosage: 25 MG, UNKNOWN
     Route: 048
     Dates: start: 20130802, end: 20131205
  13. REGPARA [Concomitant]
     Active Substance: CINACALCET HYDROCHLORIDE
     Dosage: 50 MG, UNKNOWN
     Route: 048
     Dates: start: 20160520, end: 20161004
  14. GASTER [Concomitant]
     Active Substance: FAMOTIDINE
     Indication: PRODUCT USED FOR UNKNOWN INDICATION
     Dosage: 20 MG, UNKNOWN
     Route: 048
  15. ZYLORIC [Concomitant]
     Active Substance: ALLOPURINOL
     Indication: PRODUCT USED FOR UNKNOWN INDICATION
     Dosage: 100 MG, UNKNOWN
     Route: 048
  16. AMOBAN [Concomitant]
     Active Substance: ZOPICLONE
     Indication: PRODUCT USED FOR UNKNOWN INDICATION
     Dosage: 7.5 MG, UNKNOWN
     Route: 048
  17. NESP [Concomitant]
     Active Substance: DARBEPOETIN ALFA
     Indication: PRODUCT USED FOR UNKNOWN INDICATION
     Dosage: 10 ?G, 1X/WEEK
     Route: 048
  18. PRECIPITATED CALCIUM CARBONATE [Concomitant]
     Active Substance: CALCIUM CARBONATE
     Indication: HYPERPHOSPHATAEMIA
     Dosage: 2 G, UNKNOWN
     Route: 048
     Dates: end: 20120715
  19. ROCALTROL [Concomitant]
     Active Substance: CALCITRIOL
     Dosage: 1.5 ?G, UNKNOWN
     Route: 042
     Dates: start: 20120709, end: 20130730
  20. ROCALTROL [Concomitant]
     Active Substance: CALCITRIOL
     Dosage: 1.5 ?G, UNKNOWN
     Route: 042
     Dates: start: 20130909, end: 20140407
  21. PROCYLIN [Concomitant]
     Active Substance: BERAPROST SODIUM
     Indication: PRODUCT USED FOR UNKNOWN INDICATION
     Dosage: 120 ?G, UNKNOWN
     Route: 048
  22. NOVOLIN 30R                        /00030501/ [Concomitant]
     Active Substance: INSULIN HUMAN
     Indication: PRODUCT USED FOR UNKNOWN INDICATION
     Dosage: 16 IU, UNKNOWN
     Route: 058
  23. FERRICON [Concomitant]
     Indication: NEPHROGENIC ANAEMIA
     Dosage: 50 MG, 1X/WEEK
     Route: 042
     Dates: start: 20100311
  24. ROCALTROL [Concomitant]
     Active Substance: CALCITRIOL
     Dosage: 1 ?G, UNKNOWN
     Route: 042
     Dates: start: 20140409, end: 20140806
  25. ROCALTROL [Concomitant]
     Active Substance: CALCITRIOL
     Dosage: 1 ?G, UNKNOWN
     Route: 042
     Dates: start: 20140811, end: 20151225
  26. EPADEL                             /01682402/ [Concomitant]
     Active Substance: ICOSAPENT ETHYL
     Indication: PRODUCT USED FOR UNKNOWN INDICATION
     Dosage: 1800 MG, UNKNOWN
     Route: 048
  27. LANDSEN [Concomitant]
     Active Substance: CLONAZEPAM
     Indication: PRODUCT USED FOR UNKNOWN INDICATION
     Dosage: 1 MG, UNKNOWN
     Route: 048
  28. PHOSBLOCK [Concomitant]
     Active Substance: FERRIC HYDROXIDE
     Indication: HYPERPHOSPHATAEMIA
     Dosage: 1500 MG, UNKNOWN
     Route: 048
     Dates: end: 20120708
  29. PHOSBLOCK [Concomitant]
     Active Substance: FERRIC HYDROXIDE
     Dosage: 3000 MG, UNKNOWN
     Route: 048
     Dates: start: 20130211, end: 20160520
  30. PHOSBLOCK [Concomitant]
     Active Substance: FERRIC HYDROXIDE
     Dosage: 1000 MG, UNKNOWN
     Route: 048
     Dates: start: 20160909, end: 20160918
  31. PHOSBLOCK [Concomitant]
     Active Substance: FERRIC HYDROXIDE
     Dosage: 1000 MG, UNKNOWN
     Route: 048
     Dates: start: 20161028, end: 20161106
  32. PRECIPITATED CALCIUM CARBONATE [Concomitant]
     Active Substance: CALCIUM CARBONATE
     Dosage: 2 G, UNKNOWN
     Route: 048
     Dates: start: 20131014
  33. MAXACALCITOL [Concomitant]
     Active Substance: MAXACALCITOL
     Indication: PRODUCT USED FOR UNKNOWN INDICATION
     Dosage: 2.5 ?G, UNKNOWN
     Route: 042
     Dates: start: 20151230, end: 20160127
  34. 405 (LANTHANUM CARBONATE) [Suspect]
     Active Substance: LANTHANUM CARBONATE
     Dosage: UNK, UNKNOWN
     Route: 048
  35. REGPARA [Concomitant]
     Active Substance: CINACALCET HYDROCHLORIDE
     Dosage: 7.5 MG, UNKNOWN
     Route: 048
     Dates: start: 20161005, end: 20170209
  36. GLUCOSE [Concomitant]
     Active Substance: DEXTROSE
     Indication: PRODUCT USED FOR UNKNOWN INDICATION
     Dosage: 20 ML, 1X/WEEK
     Route: 042
     Dates: start: 20100311
  37. PHOSBLOCK [Concomitant]
     Active Substance: FERRIC HYDROXIDE
     Dosage: 2250 MG, UNKNOWN
     Route: 048
     Dates: start: 20120709, end: 20130210
  38. PHOSBLOCK [Concomitant]
     Active Substance: FERRIC HYDROXIDE
     Dosage: 1000 MG, UNKNOWN
     Route: 048
     Dates: start: 20161218, end: 20161228
  39. MAXACALCITOL [Concomitant]
     Active Substance: MAXACALCITOL
     Dosage: 10 ?G, UNKNOWN
     Route: 042
     Dates: start: 20151228, end: 20160201
  40. MAXACALCITOL [Concomitant]
     Active Substance: MAXACALCITOL
     Dosage: 7.5 ?G, UNKNOWN
     Route: 042
     Dates: start: 20160205, end: 20160607
  41. MAXACALCITOL [Concomitant]
     Active Substance: MAXACALCITOL
     Dosage: 5 ?G, UNKNOWN
     Route: 042
     Dates: start: 20160520, end: 20170131
  42. MAXACALCITOL [Concomitant]
     Active Substance: MAXACALCITOL
     Dosage: 20 ?G, UNKNOWN
     Route: 042
     Dates: start: 20160907, end: 20161014
  43. MAXACALCITOL [Concomitant]
     Active Substance: MAXACALCITOL
     Dosage: 10 ?G, UNKNOWN
     Route: 065
     Dates: start: 20161005, end: 20170131
  44. ROCALTROL [Concomitant]
     Active Substance: CALCITRIOL
     Dosage: 3 ?G, UNKNOWN
     Route: 042
     Dates: start: 20130731, end: 20130806
  45. 405 (LANTHANUM CARBONATE) [Suspect]
     Active Substance: LANTHANUM CARBONATE
     Dosage: 500 MG, UNKNOWN
     Route: 048
     Dates: start: 20160909, end: 20160918
  46. 405 (LANTHANUM CARBONATE) [Suspect]
     Active Substance: LANTHANUM CARBONATE
     Dosage: 500 MG, UNKNOWN
     Route: 048
     Dates: start: 20161219, end: 20170107
  47. FUROSEMIDE. [Concomitant]
     Active Substance: FUROSEMIDE
     Indication: PRODUCT USED FOR UNKNOWN INDICATION
     Dosage: 60 MG, UNKNOWN
     Route: 048
  48. PHOSBLOCK [Concomitant]
     Active Substance: FERRIC HYDROXIDE
     Dosage: 2000 MG, UNKNOWN
     Route: 048
     Dates: start: 20160713
  49. PHOSBLOCK [Concomitant]
     Active Substance: FERRIC HYDROXIDE
     Dosage: 1000 MG, UNKNOWN
     Route: 048
     Dates: start: 20160727, end: 20160805
  50. PHOSBLOCK [Concomitant]
     Active Substance: FERRIC HYDROXIDE
     Dosage: 1000 MG, UNKNOWN
     Route: 048
     Dates: start: 20161121, end: 20161130
  51. PRECIPITATED CALCIUM CARBONATE [Concomitant]
     Active Substance: CALCIUM CARBONATE
     Dosage: 3 G, UNKNOWN
     Route: 048
     Dates: start: 20120716, end: 20131013
  52. MAXACALCITOL [Concomitant]
     Active Substance: MAXACALCITOL
     Dosage: 10 ?G, UNKNOWN
     Route: 042
     Dates: start: 20160608, end: 20160906
  53. MAXACALCITOL [Concomitant]
     Active Substance: MAXACALCITOL
     Dosage: 10 ?G, UNKNOWN
     Route: 042
     Dates: start: 20170201, end: 20170221
  54. ROCALTROL [Concomitant]
     Active Substance: CALCITRIOL
     Dosage: 2 ?G, UNKNOWN
     Route: 042
     Dates: start: 20140411, end: 20140808
  55. ROCALTROL [Concomitant]
     Active Substance: CALCITRIOL
     Dosage: UNK
     Dates: start: 20140813, end: 20151223

REACTIONS (10)
  - Hiatus hernia [Not Recovered/Not Resolved]
  - Diarrhoea [Recovered/Resolved]
  - Dizziness [Recovered/Resolved]
  - Atrial fibrillation [Recovered/Resolved]
  - Infected dermal cyst [Recovered/Resolved]
  - Nasopharyngitis [Recovered/Resolved]
  - Lip neoplasm [Recovered/Resolved]
  - Influenza [Recovered/Resolved]
  - Chalazion [Recovered/Resolved]
  - Muscle spasms [Recovered/Resolved]

NARRATIVE: CASE EVENT DATE: 20130120
